FAERS Safety Report 18967119 (Version 2)
Quarter: 2021Q1

REPORT INFORMATION
  Report Type: Spontaneous
  Country: RU (occurrence: RU)
  Receive Date: 20210304
  Receipt Date: 20210318
  Transmission Date: 20210420
  Serious: No
  Sender: FDA-Public Use
  Company Number: RU-LUPIN PHARMACEUTICALS INC.-2021-02630

PATIENT
  Age: 34 Year
  Sex: Male

DRUGS (3)
  1. MELOXICAM TABLETS [Suspect]
     Active Substance: MELOXICAM
     Indication: GOUT
     Dosage: UNK UNK, QD (ADMINISTERED NOT EXCEEDING 15 MG)
     Route: 048
     Dates: start: 2019
  2. ALLOPURINOL. [Suspect]
     Active Substance: ALLOPURINOL
     Indication: GOUT
     Dosage: UNK
     Route: 048
  3. ALLOPURINOL. [Suspect]
     Active Substance: ALLOPURINOL
     Dosage: 150 MILLIGRAM, QD (DOSE INCREASED BY 50MG EVERY 3 WEEKS TO ACHIEVE A DAILY DOSE OF 300MG)
     Route: 048
     Dates: start: 2019

REACTIONS (2)
  - Urticaria [Recovered/Resolved]
  - Dermatitis allergic [Recovered/Resolved]

NARRATIVE: CASE EVENT DATE: 2019
